FAERS Safety Report 20822559 (Version 1)
Quarter: 2022Q2

REPORT INFORMATION
  Report Type: Spontaneous
  Country: US (occurrence: US)
  Receive Date: 20220512
  Receipt Date: 20220512
  Transmission Date: 20220720
  Serious: No
  Sender: FDA-Public Use
  Company Number: US-PFIZER INC-202200610271

PATIENT
  Age: 67 Year
  Sex: Female
  Weight: 57.61 kg

DRUGS (2)
  1. PREMPRO [Suspect]
     Active Substance: ESTROGENS, CONJUGATED\MEDROXYPROGESTERONE ACETATE
     Indication: Hormone therapy
     Dosage: UNK, ALTERNATE DAY (0.45MG/1.5MG PUT IT IN HER MOUTH AND SWALLOW EVERY OTHER DAY)
     Route: 048
     Dates: start: 202104
  2. PREMPRO [Suspect]
     Active Substance: ESTROGENS, CONJUGATED\MEDROXYPROGESTERONE ACETATE
     Dosage: UNK (LOWER DOSAGE OF PREMPRO 0.3MG/1.5MG)

REACTIONS (3)
  - Insomnia [Not Recovered/Not Resolved]
  - Hot flush [Not Recovered/Not Resolved]
  - Off label use [Unknown]

NARRATIVE: CASE EVENT DATE: 20210101
